FAERS Safety Report 12287541 (Version 1)
Quarter: 2016Q2

REPORT INFORMATION
  Report Type: Spontaneous
  Country: US (occurrence: US)
  Receive Date: 20160420
  Receipt Date: 20160420
  Transmission Date: 20160815
  Serious: Yes (Other)
  Sender: FDA-Public Use
  Company Number: ADR-2015-00946

PATIENT
  Age: 57 Year
  Sex: Female

DRUGS (2)
  1. LIORESAL [Suspect]
     Active Substance: BACLOFEN
     Dosage: 951 MCG/DAY
     Route: 037
     Dates: end: 20150508
  2. LIORESAL [Suspect]
     Active Substance: BACLOFEN
     Dosage: 475 MCG/DAY
     Route: 037
     Dates: start: 20150508

REACTIONS (3)
  - Therapeutic response decreased [Recovered/Resolved]
  - Muscle spasticity [Recovered/Resolved]
  - Cerebrospinal fluid leakage [Recovered/Resolved]
